FAERS Safety Report 24574215 (Version 1)
Quarter: 2024Q4

REPORT INFORMATION
  Report Type: Spontaneous
  Country: GB (occurrence: GB)
  Receive Date: 20241104
  Receipt Date: 20241104
  Transmission Date: 20250114
  Serious: Yes (Hospitalization)
  Sender: ACCORD
  Company Number: GB-MLMSERVICE-20241016-PI229340-00082-1

PATIENT
  Age: 7 Decade
  Sex: Male

DRUGS (12)
  1. CARBOPLATIN [Suspect]
     Active Substance: CARBOPLATIN
     Indication: Small cell carcinoma
     Dosage: RECEIVED ONE CYCLE
  2. ETOPOSIDE [Suspect]
     Active Substance: ETOPOSIDE
     Indication: Small cell carcinoma
     Dosage: RECEIVED ONE CYCLE
  3. LORATADINE [Concomitant]
     Active Substance: LORATADINE
  4. AMITRIPTYLINE [Concomitant]
     Active Substance: AMITRIPTYLINE
  5. METFORMIN [Concomitant]
     Active Substance: METFORMIN HYDROCHLORIDE
  6. ATORVASTATIN [Concomitant]
     Active Substance: ATORVASTATIN
  7. CARBOPLATIN [Suspect]
     Active Substance: CARBOPLATIN
     Indication: Metastases to liver
     Dosage: RECEIVED ONE CYCLE
  8. CARBOPLATIN [Suspect]
     Active Substance: CARBOPLATIN
     Indication: Colorectal cancer
     Dosage: RECEIVED ONE CYCLE
  9. ETOPOSIDE [Suspect]
     Active Substance: ETOPOSIDE
     Indication: Metastases to peritoneum
     Dosage: RECEIVED ONE CYCLE
  10. ETOPOSIDE [Suspect]
     Active Substance: ETOPOSIDE
     Indication: Metastases to peritoneum
     Dosage: RECEIVED ONE CYCLE
  11. CARBOPLATIN [Suspect]
     Active Substance: CARBOPLATIN
     Indication: Metastases to peritoneum
     Dosage: RECEIVED ONE CYCLE
  12. ETOPOSIDE [Suspect]
     Active Substance: ETOPOSIDE
     Indication: Metastases to liver
     Dosage: RECEIVED ONE CYCLE

REACTIONS (2)
  - Tumour lysis syndrome [Recovered/Resolved]
  - Off label use [Unknown]
